FAERS Safety Report 24309370 (Version 3)
Quarter: 2024Q3

REPORT INFORMATION
  Report Type: Spontaneous
  Country: BG (occurrence: BG)
  Receive Date: 20240911
  Receipt Date: 20240927
  Transmission Date: 20241017
  Serious: Yes (Other)
  Sender: ORGANON
  Company Number: BG-ORGANON-O2409BGR000126

PATIENT
  Age: 71 Year
  Sex: Male

DRUGS (19)
  1. ENALAPRIL MALEATE [Suspect]
     Active Substance: ENALAPRIL MALEATE
     Dosage: UNK
     Route: 048
  2. LOSARTAN POTASSIUM [Suspect]
     Active Substance: LOSARTAN POTASSIUM
     Indication: Hypertension
     Dosage: 50 MILLIGRAM, QD
     Route: 065
  3. LOSARTAN POTASSIUM [Suspect]
     Active Substance: LOSARTAN POTASSIUM
     Dosage: 50 MILLIGRAM, QD
     Route: 065
  4. TOFACITINIB [Suspect]
     Active Substance: TOFACITINIB
     Indication: Rheumatoid arthritis
     Dosage: FOR 13 YEARS
     Route: 065
  5. TOFACITINIB [Suspect]
     Active Substance: TOFACITINIB
     Dosage: FOR 13 YEARS
     Route: 065
  6. ALLOPURINOL [Suspect]
     Active Substance: ALLOPURINOL
     Indication: Hyperuricaemia
     Dosage: FOR THE PAST 6 MONTHS
     Route: 065
  7. ALLOPURINOL [Suspect]
     Active Substance: ALLOPURINOL
     Dosage: FOR THE PAST 6 MONTHS
     Route: 065
  8. DIPYRIDAMOLE [Suspect]
     Active Substance: DIPYRIDAMOLE
     Indication: Polycythaemia
     Dosage: FOR PAST 22 YEARS
     Route: 065
  9. DIPYRIDAMOLE [Suspect]
     Active Substance: DIPYRIDAMOLE
     Dosage: FOR PAST 22 YEARS
     Route: 065
  10. HYDROCHLOROTHIAZIDE\TRIAMTERENE [Suspect]
     Active Substance: HYDROCHLOROTHIAZIDE\TRIAMTERENE
     Indication: Hypertension
     Dosage: 25 MG/12.5 MG
     Route: 065
  11. HYDROCHLOROTHIAZIDE\TRIAMTERENE [Suspect]
     Active Substance: HYDROCHLOROTHIAZIDE\TRIAMTERENE
     Dosage: 25 MG/12.5 MG
     Route: 065
  12. TAMSULOSIN [Suspect]
     Active Substance: TAMSULOSIN
     Indication: Benign prostatic hyperplasia
     Dosage: FOR PAST 20 YEARS, ~0.4 MG, QD
     Route: 065
  13. TAMSULOSIN [Suspect]
     Active Substance: TAMSULOSIN
     Dosage: FOR PAST 20 YEARS, 0.4 MG, QD
     Route: 065
  14. TAMSULOSIN [Suspect]
     Active Substance: TAMSULOSIN
     Dosage: FOR PAST 20 YEARS
     Route: 065
  15. TAMSULOSIN [Suspect]
     Active Substance: TAMSULOSIN
     Dosage: FOR PAST 20 YEARS
     Route: 065
  16. FELODIPINE [Suspect]
     Active Substance: FELODIPINE
     Indication: Hypertension
     Dosage: 5 MILLIGRAM, QD
     Route: 065
  17. FELODIPINE [Suspect]
     Active Substance: FELODIPINE
     Dosage: 5 MILLIGRAM, QD
     Route: 065
  18. METOPROLOL [Suspect]
     Active Substance: METOPROLOL
     Indication: Hypertension
     Dosage: HALF A TABLET A DAY ADMINISTRATED FOR THE PAST 30 YEARS
     Route: 065
  19. METOPROLOL [Suspect]
     Active Substance: METOPROLOL
     Dosage: HALF A TABLET A DAY ADMINISTRATED FOR THE PAST 30 YEARS
     Route: 065

REACTIONS (5)
  - Basal cell carcinoma [Unknown]
  - Squamous cell carcinoma [Unknown]
  - Keratoacanthoma [Recovered/Resolved]
  - Scab [Recovered/Resolved]
  - Neoplasm [Recovered/Resolved]
